FAERS Safety Report 22643579 (Version 1)
Quarter: 2023Q2

REPORT INFORMATION
  Report Type: Spontaneous
  Country: US (occurrence: US)
  Receive Date: 20230627
  Receipt Date: 20230627
  Transmission Date: 20230722
  Serious: No
  Sender: FDA-Public Use
  Company Number: US-SA-SAC20230622001108

PATIENT
  Sex: Male
  Weight: 275.5 kg

DRUGS (2)
  1. DUPIXENT [Suspect]
     Active Substance: DUPILUMAB
     Indication: Dermatitis atopic
     Dosage: 200 MG, QOW
     Route: 058
     Dates: start: 202203
  2. CLARITIN [Concomitant]
     Active Substance: LORATADINE

REACTIONS (2)
  - Ocular hyperaemia [Not Recovered/Not Resolved]
  - Incorrect dose administered [Unknown]
